FAERS Safety Report 16965199 (Version 1)
Quarter: 2019Q4

REPORT INFORMATION
  Report Type: Spontaneous
  Country: BR (occurrence: BR)
  Receive Date: 20191028
  Receipt Date: 20191028
  Transmission Date: 20200122
  Serious: Yes (Other)
  Sender: FDA-Public Use
  Company Number: BR-SA-2019SA293111

PATIENT
  Age: 37 Year
  Sex: Female
  Weight: 90.5 kg

DRUGS (1)
  1. CLEXANE [Suspect]
     Active Substance: ENOXAPARIN SODIUM
     Indication: PROPHYLAXIS
     Dosage: 40 MG
     Route: 065
     Dates: start: 20191014, end: 20191020

REACTIONS (10)
  - Pruritus [Recovered/Resolved]
  - Application site erythema [Recovered/Resolved]
  - Erythema [Recovering/Resolving]
  - Urinary tract infection [Recovering/Resolving]
  - Skin burning sensation [Unknown]
  - Urinary retention [Recovering/Resolving]
  - Condition aggravated [Recovered/Resolved]
  - Hypersensitivity [Unknown]
  - Wound [Recovered/Resolved]
  - Unevaluable event [Recovering/Resolving]

NARRATIVE: CASE EVENT DATE: 20191016
